FAERS Safety Report 17957212 (Version 2)
Quarter: 2020Q3

REPORT INFORMATION
  Report Type: Spontaneous
  Country: FR (occurrence: FR)
  Receive Date: 20200629
  Receipt Date: 20200701
  Transmission Date: 20201103
  Serious: Yes (Death, Other)
  Sender: FDA-Public Use
  Company Number: NVSC2020FR129084

PATIENT
  Age: 84 Year
  Sex: Male

DRUGS (3)
  1. VORICONAZOLE. [Suspect]
     Active Substance: VORICONAZOLE
     Indication: VITRITIS
     Dosage: UNK
     Route: 048
  2. VORICONAZOLE. [Suspect]
     Active Substance: VORICONAZOLE
     Dosage: UNK
     Route: 042
  3. RITUXIMAB. [Suspect]
     Active Substance: RITUXIMAB
     Indication: THROMBOTIC THROMBOCYTOPENIC PURPURA
     Dosage: UNK
     Route: 065

REACTIONS (10)
  - Off label use [Fatal]
  - Intentional product use issue [Fatal]
  - Iridocyclitis [Fatal]
  - Candida endophthalmitis [Unknown]
  - Escherichia infection [Unknown]
  - Product use in unapproved indication [Unknown]
  - Drug ineffective for unapproved indication [Fatal]
  - Urinary tract infection [Unknown]
  - Therapy non-responder [Unknown]
  - Candida infection [Unknown]
